FAERS Safety Report 5172279-2 (Version None)
Quarter: 2006Q4

REPORT INFORMATION
  Report Type: 
  Country: None (occurrence: None)
  Receive Date: 20061213
  Receipt Date: 20061030
  Transmission Date: 20070319
  Serious: Yes (Hospitalization, Other)
  Sender: FDA-Public Use
  Company Number: JP-GILEAD-2006-0010559

PATIENT
  Sex: Male

DRUGS (10)
  1. VIREAD [Suspect]
     Indication: HIV INFECTION
     Route: 048
     Dates: start: 20040814
  2. STOCRIN [Suspect]
     Indication: HIV INFECTION
     Route: 048
     Dates: start: 20000415
  3. EPIVIR [Concomitant]
     Indication: HIV INFECTION
     Dates: start: 19970905
  4. GASMOTIN [Concomitant]
     Dates: start: 20050401, end: 20050407
  5. ALLOPURINOL [Concomitant]
     Dates: start: 20050401
  6. SELBEX [Concomitant]
     Dates: start: 20050401
  7. RECOMBINATE [Concomitant]
     Dates: start: 20050401
  8. BIOFERMIN [Concomitant]
     Dates: start: 20050408
  9. BLOPRESS [Concomitant]
     Dates: start: 20050708
  10. URSO [Concomitant]
     Dates: start: 20050401

REACTIONS (7)
  - ALANINE AMINOTRANSFERASE INCREASED [None]
  - ASPARTATE AMINOTRANSFERASE INCREASED [None]
  - BLOOD ALKALINE PHOSPHATASE INCREASED [None]
  - BLOOD LACTATE DEHYDROGENASE INCREASED [None]
  - GAMMA-GLUTAMYLTRANSFERASE INCREASED [None]
  - HEPATIC FUNCTION ABNORMAL [None]
  - HERPES ZOSTER [None]
